FAERS Safety Report 15964558 (Version 2)
Quarter: 2020Q1

REPORT INFORMATION
  Report Type: Report from Study
  Country: DE (occurrence: DE)
  Receive Date: 20190215
  Receipt Date: 20200206
  Transmission Date: 20200409
  Serious: Yes (Hospitalization, Other)
  Sender: FDA-Public Use
  Company Number: DE-ROCHE-2262072

PATIENT
  Sex: Female

DRUGS (3)
  1. OCREVUS [Suspect]
     Active Substance: OCRELIZUMAB
     Route: 042
     Dates: start: 20200116
  2. OCREVUS [Suspect]
     Active Substance: OCRELIZUMAB
     Indication: RELAPSING-REMITTING MULTIPLE SCLEROSIS
     Route: 042
     Dates: start: 20180621
  3. OCREVUS [Suspect]
     Active Substance: OCRELIZUMAB
     Route: 042
     Dates: start: 20190124

REACTIONS (8)
  - Subcutaneous abscess [Recovered/Resolved]
  - Anogenital warts [Recovered/Resolved]
  - Fatigue [Recovered/Resolved]
  - Oropharyngeal pain [Recovered/Resolved]
  - Papilloma viral infection [Recovered/Resolved]
  - Multiple sclerosis relapse [Recovering/Resolving]
  - Influenza like illness [Recovered/Resolved]
  - Bronchial hyperreactivity [Not Recovered/Not Resolved]

NARRATIVE: CASE EVENT DATE: 201808
